FAERS Safety Report 7733836-X (Version None)
Quarter: 2011Q3

REPORT INFORMATION
  Report Type: 
  Country: None (occurrence: None)
  Receive Date: 20110907
  Receipt Date: 20100907
  Transmission Date: 20111222
  Serious: Yes (Hospitalization)
  Sender: FDA-Public Use
  Company Number: US-MUTUAL PHARMACEUTICAL COMPANY, INC.-2010P1001319

PATIENT
  Sex: Female

DRUGS (2)
  1. VITAMIN TAB [Concomitant]
     Route: 048
  2. SULFAMETHOXAZOLE AND TRIMETHOPRIM [Suspect]
     Route: 048
     Dates: start: 20100830, end: 20100904

REACTIONS (1)
  - HYPERSENSITIVITY [None]
